FAERS Safety Report 20639160 (Version 3)
Quarter: 2022Q2

REPORT INFORMATION
  Report Type: Report from Study
  Country: US (occurrence: US)
  Receive Date: 20220326
  Receipt Date: 20220530
  Transmission Date: 20220721
  Serious: No
  Sender: FDA-Public Use
  Company Number: US-NOVARTISTESTPH-NVSC2022US068610

PATIENT
  Sex: Female

DRUGS (1)
  1. PIQRAY [Suspect]
     Active Substance: ALPELISIB
     Indication: Product used for unknown indication
     Dosage: UNK
     Route: 048

REACTIONS (11)
  - COVID-19 [Unknown]
  - Bladder disorder [Unknown]
  - Skin exfoliation [Unknown]
  - Oral discomfort [Unknown]
  - Oral pain [Unknown]
  - Blood glucose decreased [Unknown]
  - Blood glucose increased [Unknown]
  - Renal disorder [Unknown]
  - Diarrhoea [Unknown]
  - Abdominal pain upper [Unknown]
  - Product dose omission issue [Unknown]
